FAERS Safety Report 25727246 (Version 1)
Quarter: 2025Q3

REPORT INFORMATION
  Report Type: Report from Study
  Country: US (occurrence: US)
  Receive Date: 20250826
  Receipt Date: 20250826
  Transmission Date: 20251020
  Serious: Yes (Other)
  Sender: MYLAN
  Company Number: US-MYLANLABS-2025M1070390

PATIENT

DRUGS (5)
  1. TACROLIMUS [Suspect]
     Active Substance: TACROLIMUS
     Indication: Polyomavirus-associated nephropathy
  2. MYCOPHENOLATE MOFETIL [Suspect]
     Active Substance: MYCOPHENOLATE MOFETIL
     Indication: Polyomavirus-associated nephropathy
     Dosage: UNK, QD
  3. PREDNISONE [Suspect]
     Active Substance: PREDNISONE
     Indication: Polyomavirus-associated nephropathy
     Dosage: 5 MILLIGRAM, QD
  4. IMMUNE GLOBULIN NOS [Suspect]
     Active Substance: IMMUNE GLOBULIN NOS
     Indication: Polyomavirus-associated nephropathy
  5. BELATACEPT [Suspect]
     Active Substance: BELATACEPT
     Indication: Polyomavirus-associated nephropathy

REACTIONS (3)
  - Drug ineffective [Unknown]
  - Medication error [Unknown]
  - Off label use [Unknown]
